FAERS Safety Report 6108215-1 (Version None)
Quarter: 2009Q1

REPORT INFORMATION
  Report Type: 
  Country: None (occurrence: None)
  Receive Date: 20090309
  Receipt Date: 20090226
  Transmission Date: 20090719
  Serious: Yes (Death)
  Sender: FDA-Public Use
  Company Number: JP-ABBOTT-09P-087-0560887-00

PATIENT
  Age: 81 Year
  Sex: Male

DRUGS (3)
  1. LEUPLIN SR FOR INJECTION 11.25 MG [Suspect]
     Indication: PROSTATE CANCER STAGE II
     Route: 058
     Dates: start: 20060403, end: 20071128
  2. CASODEX [Concomitant]
     Indication: PROSTATE CANCER STAGE II
     Route: 048
     Dates: start: 20060320, end: 20070411
  3. PROPIVERINE HYDROCHLORIDE [Concomitant]
     Indication: URINARY INCONTINENCE
     Route: 048
     Dates: start: 20061115, end: 20071221

REACTIONS (2)
  - CYSTITIS [None]
  - LUNG NEOPLASM MALIGNANT [None]
